FAERS Safety Report 10519149 (Version 2)
Quarter: 2015Q1

REPORT INFORMATION
  Report Type: Spontaneous
  Country: US (occurrence: US)
  Receive Date: 20141015
  Receipt Date: 20150306
  Transmission Date: 20150720
  Serious: Yes (Hospitalization, Other)
  Sender: FDA-Public Use
  Company Number: US-BAYER-2014-152428

PATIENT
  Age: 25 Year
  Sex: Female
  Weight: 94.33 kg

DRUGS (2)
  1. ALBUTEROL. [Concomitant]
     Active Substance: ALBUTEROL
     Indication: ASTHMA
     Dosage: UNK
     Dates: start: 2002
  2. MIRENA [Suspect]
     Active Substance: LEVONORGESTREL
     Indication: CONTRACEPTION
     Dosage: 20 MCG/24HR, CONT
     Route: 015
     Dates: start: 20071114, end: 20101004

REACTIONS (9)
  - Uterine perforation [None]
  - Habitual abortion [None]
  - Injury [None]
  - Anxiety [None]
  - Device issue [None]
  - Emotional distress [None]
  - Pain [None]
  - Scar [None]
  - Depression [None]

NARRATIVE: CASE EVENT DATE: 20101004
